FAERS Safety Report 7854093-X (Version None)
Quarter: 2011Q4

REPORT INFORMATION
  Report Type: 
  Country: None (occurrence: None)
  Receive Date: 20111026
  Receipt Date: 20111020
  Transmission Date: 20120403
  Serious: No
  Sender: FDA-Public Use
  Company Number: US-PFIZER INC-2007028044

PATIENT
  Sex: Male
  Weight: 117.46 kg

DRUGS (8)
  1. ATENOLOL [Concomitant]
     Indication: BLOOD PRESSURE
     Dosage: 100 MG, UNK
     Route: 048
  2. VIAGRA [Suspect]
     Indication: ERECTILE DYSFUNCTION
     Dosage: 100 MG, AS NEEDED
     Route: 048
     Dates: start: 20030101
  3. GLUCOPHAGE [Concomitant]
     Indication: DIABETES MELLITUS
     Dosage: UNK MG, UNK
     Route: 048
  4. GLUCOTROL [Concomitant]
     Indication: DIABETES MELLITUS
     Dosage: UNK
  5. PROCARDIA [Concomitant]
     Indication: BLOOD PRESSURE
     Dosage: 30 MG, 3X/DAY
     Route: 048
  6. CIALIS [Concomitant]
     Dosage: UNK
  7. VIAGRA [Suspect]
  8. COZAAR [Concomitant]
     Indication: BLOOD PRESSURE
     Dosage: 200 MG, UNK
     Route: 048

REACTIONS (2)
  - ERECTILE DYSFUNCTION [None]
  - DRUG INEFFECTIVE [None]
